FAERS Safety Report 12337701 (Version 15)
Quarter: 2018Q2

REPORT INFORMATION
  Report Type: Spontaneous
  Country: US (occurrence: US)
  Receive Date: 20160505
  Receipt Date: 20180628
  Transmission Date: 20180711
  Serious: Yes (Other)
  Sender: FDA-Public Use
  Company Number: US-ACTELION-A-US2016-135196

PATIENT
  Age: 66 Year
  Sex: Male

DRUGS (24)
  1. UPTRAVI [Suspect]
     Active Substance: SELEXIPAG
     Indication: PULMONARY ARTERIAL HYPERTENSION
     Dosage: 200 MCG, BID
     Route: 048
     Dates: start: 20160415, end: 20180620
  2. UPTRAVI [Suspect]
     Active Substance: SELEXIPAG
     Dosage: 1200 MCG, BID
     Route: 048
     Dates: start: 20160902
  3. PREVACID [Concomitant]
     Active Substance: LANSOPRAZOLE
  4. GEMFIBROZIL. [Concomitant]
     Active Substance: GEMFIBROZIL
  5. UPTRAVI [Suspect]
     Active Substance: SELEXIPAG
     Dosage: 1600 MCG, BID
     Route: 048
  6. UPTRAVI [Suspect]
     Active Substance: SELEXIPAG
     Dosage: 1400 MCG, BID
     Route: 048
  7. UPTRAVI [Suspect]
     Active Substance: SELEXIPAG
     Dosage: 800 MCG, BID
     Route: 048
  8. METFORMIN HCL [Concomitant]
     Active Substance: METFORMIN HYDROCHLORIDE
  9. FUROSEMIDE. [Concomitant]
     Active Substance: FUROSEMIDE
  10. LINUM USITATISSIMUM SEED [Concomitant]
  11. UPTRAVI [Suspect]
     Active Substance: SELEXIPAG
     Dosage: 600 MCG, BID
     Route: 048
     Dates: start: 20170510
  12. UPTRAVI [Suspect]
     Active Substance: SELEXIPAG
     Dosage: 1000 MCG, BID
     Route: 048
  13. CRESTOR [Concomitant]
     Active Substance: ROSUVASTATIN CALCIUM
  14. AMLODIPINE BESYLATE. [Concomitant]
     Active Substance: AMLODIPINE BESYLATE
  15. MOXATAG [Concomitant]
     Active Substance: AMOXICILLIN
  16. MULTIVITAMIN [Concomitant]
     Active Substance: VITAMINS
  17. METFORMIN [Concomitant]
     Active Substance: METFORMIN HYDROCHLORIDE
     Indication: ESSENTIAL HYPERTENSION
  18. UPTRAVI [Suspect]
     Active Substance: SELEXIPAG
     Dosage: 400 MCG, BID
     Route: 048
     Dates: start: 20170623
  19. UNIVASC [Concomitant]
     Active Substance: MOEXIPRIL HYDROCHLORIDE
  20. IRON [Concomitant]
     Active Substance: IRON
  21. TRACLEER [Suspect]
     Active Substance: BOSENTAN
     Indication: PULMONARY ARTERIAL HYPERTENSION
     Dosage: 125 MG, BID
     Route: 048
     Dates: start: 20090118
  22. SILDENAFIL. [Concomitant]
     Active Substance: SILDENAFIL
     Dosage: 20 MG, TID
  23. ASPIRIN. [Concomitant]
     Active Substance: ASPIRIN
  24. COLCHICINE. [Concomitant]
     Active Substance: COLCHICINE

REACTIONS (12)
  - Seasonal allergy [Unknown]
  - Headache [Unknown]
  - Tooth infection [Unknown]
  - Adverse event [Unknown]
  - Oropharyngeal pain [Unknown]
  - Secretion discharge [Unknown]
  - Pain [Not Recovered/Not Resolved]
  - Flushing [Unknown]
  - Rhinorrhoea [Unknown]
  - Condition aggravated [Unknown]
  - Diarrhoea [Unknown]
  - Myalgia [Unknown]

NARRATIVE: CASE EVENT DATE: 201604
